FAERS Safety Report 4843719-0 (Version None)
Quarter: 2005Q4

REPORT INFORMATION
  Report Type: 
  Country: None (occurrence: None)
  Receive Date: 20051202
  Receipt Date: 20051128
  Transmission Date: 20060501
  Serious: Yes (Other)
  Sender: FDA-Public Use
  Company Number: DE-AVENTIS-200512731DE

PATIENT
  Age: 75 Year
  Sex: Female

DRUGS (3)
  1. CLEXANE [Suspect]
     Indication: THROMBOSIS PROPHYLAXIS
     Route: 058
     Dates: start: 20050901
  2. CLEXANE [Suspect]
     Indication: HEART VALVE REPLACEMENT
     Route: 058
     Dates: start: 20050901
  3. HEPARIN [Concomitant]
     Indication: THROMBOSIS PROPHYLAXIS
     Dosage: DOSE: AT DIALYSIS

REACTIONS (1)
  - SKIN NECROSIS [None]
